FAERS Safety Report 6029297-1 (Version None)
Quarter: 2009Q1

REPORT INFORMATION
  Report Type: 
  Country: None (occurrence: None)
  Receive Date: 20090106
  Receipt Date: 20081222
  Transmission Date: 20090719
  Serious: No
  Sender: FDA-Public Use
  Company Number: US-B.I. PHARMACEUTICALS,INC./RIDGEFIELD-2008-BP-16959BP

PATIENT
  Sex: Male

DRUGS (5)
  1. SPIRIVA [Suspect]
     Indication: CHRONIC OBSTRUCTIVE PULMONARY DISEASE
     Dosage: 18MCG
     Route: 055
     Dates: start: 20071101
  2. ATENOLOL [Concomitant]
     Indication: HYPERTENSION
     Dosage: 100MG
     Route: 048
  3. INDAPAMIDE [Concomitant]
     Indication: HYPERTENSION
     Dosage: 2.5MG
     Route: 048
  4. ZOCOR [Concomitant]
     Indication: BLOOD CHOLESTEROL INCREASED
  5. METHIMAZOLE [Concomitant]
     Indication: HYPOTHYROIDISM
     Dosage: 5MG
     Route: 048

REACTIONS (1)
  - DYSPNOEA [None]
